FAERS Safety Report 7320294-2 (Version None)
Quarter: 2011Q1

REPORT INFORMATION
  Report Type: 
  Country: None (occurrence: None)
  Receive Date: 20110228
  Receipt Date: 20110222
  Transmission Date: 20110831
  Serious: No
  Sender: FDA-Public Use
  Company Number: US-PFIZER INC-2011039403

PATIENT
  Sex: Female
  Weight: 63.492 kg

DRUGS (3)
  1. LOTREL [Concomitant]
     Indication: HYPERTENSION
     Dosage: 5/10 MG, 2X/DAY
     Route: 048
  2. AROMASIN [Suspect]
     Indication: BREAST CANCER
     Dosage: 25 MG, 1X/DAY
     Route: 048
  3. HYDROCHLOROTHIAZIDE [Concomitant]
     Indication: HYPERTENSION
     Dosage: 25 MG, 1X/DAY
     Route: 048

REACTIONS (6)
  - ARTHRALGIA [None]
  - BACK PAIN [None]
  - MUSCULOSKELETAL CHEST PAIN [None]
  - MUSCULAR WEAKNESS [None]
  - MUSCLE SPASMS [None]
  - PAIN [None]
